FAERS Safety Report 5600252-6 (Version None)
Quarter: 2008Q1

REPORT INFORMATION
  Report Type: 
  Country: None (occurrence: None)
  Receive Date: 20080123
  Receipt Date: 20080115
  Transmission Date: 20080703
  Serious: Yes (Hospitalization)
  Sender: FDA-Public Use
  Company Number: NO-AVENTIS-200810640GDDC

PATIENT
  Age: 48 Year
  Sex: Male

DRUGS (5)
  1. FLAGYL [Suspect]
     Indication: GASTRITIS
     Dosage: DOSE: UNK
     Dates: start: 20060223, end: 20060302
  2. KLACID                             /00984601/ [Concomitant]
     Indication: GASTRITIS
     Dosage: DOSE: UNK
     Dates: start: 20060223, end: 20060302
  3. KLACID                             /00984601/ [Concomitant]
     Dosage: DOSE: UNK
     Dates: start: 20060223, end: 20060302
  4. LOSEC                              /00661201/ [Concomitant]
     Indication: GASTRITIS
     Dosage: DOSE: UNK
     Dates: start: 20060223, end: 20060302
  5. ATACAND [Concomitant]
     Dosage: DOSE: UNK

REACTIONS (1)
  - MANIA [None]
